FAERS Safety Report 9970010 (Version 5)
Quarter: 2016Q3

REPORT INFORMATION
  Report Type: Spontaneous
  Country: FR (occurrence: FR)
  Receive Date: 20140306
  Receipt Date: 20160914
  Transmission Date: 20161109
  Serious: Yes (Hospitalization, Other)
  Sender: FDA-Public Use
  Company Number: FR-ELI_LILLY_AND_COMPANY-FR201402009239

PATIENT
  Age: 14 Year
  Sex: Male

DRUGS (5)
  1. ZYPREXA [Suspect]
     Active Substance: OLANZAPINE
     Indication: SUICIDE ATTEMPT
  2. ZYPREXA [Suspect]
     Active Substance: OLANZAPINE
     Indication: MENTAL DISORDER
     Dosage: 15 MG, UNKNOWN
     Route: 048
     Dates: start: 201210
  3. ABILIFY [Suspect]
     Active Substance: ARIPIPRAZOLE
     Indication: MENTAL DISORDER
     Dosage: UNK UNK, UNKNOWN
     Route: 048
     Dates: start: 201304, end: 201310
  4. RISPERDAL [Concomitant]
     Active Substance: RISPERIDONE
     Indication: PRODUCT USED FOR UNKNOWN INDICATION
     Dosage: UNK, UNKNOWN
     Route: 065
  5. ZYPREXA [Suspect]
     Active Substance: OLANZAPINE
     Indication: GENERAL PHYSICAL HEALTH DETERIORATION
     Dosage: 10 MG, UNKNOWN
     Route: 065
     Dates: start: 201211

REACTIONS (12)
  - Nausea [Unknown]
  - Lymphopenia [Unknown]
  - Weight increased [Unknown]
  - Bicytopenia [Not Recovered/Not Resolved]
  - Pallor [Unknown]
  - Fatigue [Unknown]
  - Acute myeloid leukaemia [Not Recovered/Not Resolved]
  - Vomiting [Unknown]
  - Off label use [Recovered/Resolved]
  - Syncope [Unknown]
  - Weight decreased [Unknown]
  - Tremor [Unknown]

NARRATIVE: CASE EVENT DATE: 201310
